FAERS Safety Report 20766717 (Version 2)
Quarter: 2022Q3

REPORT INFORMATION
  Report Type: Other
  Country: KR (occurrence: None)
  Receive Date: 20220429
  Receipt Date: 20220913
  Transmission Date: 20221026
  Serious: Yes (Hospitalization)
  Sender: FDA-Public Use
  Company Number: KR-ROCHE-2872668

PATIENT
  Age: 69 Year
  Sex: Male
  Weight: 57.8 kg

DRUGS (11)
  1. ATEZOLIZUMAB [Suspect]
     Active Substance: ATEZOLIZUMAB
     Indication: Hepatocellular carcinoma
     Dosage: SUBSEQUENT DOSE ADMINISTERED ON 28/MAY/2021, 19/JUN/2021, 09/JUL/2021, 02/AUG/2021, 01/SEP/2021, 29/
     Route: 041
     Dates: start: 20210506
  2. BEVACIZUMAB [Suspect]
     Active Substance: BEVACIZUMAB
     Indication: Hepatocellular carcinoma
     Dosage: SUBSEQUENT DOSE ADMINISTERED ON 28/MAY/2021, 19/JUN/2021, 09/JUL/2021, 02/AUG/2021, 01/SEP/2021, 29/
     Route: 042
     Dates: start: 20210506
  3. ASPIRIN [Concomitant]
     Active Substance: ASPIRIN
     Indication: Hypertension
     Route: 048
  4. HYDROCHLOROTHIAZIDE\OLMESARTAN MEDOXOMIL [Concomitant]
     Active Substance: HYDROCHLOROTHIAZIDE\OLMESARTAN MEDOXOMIL
     Indication: Hypertension
     Dosage: 20/12.5 MG
     Route: 048
  5. PENNEL (SOUTH KOREA) [Concomitant]
     Route: 048
     Dates: start: 20210618
  6. URSODIOL [Concomitant]
     Active Substance: URSODIOL
     Route: 048
     Dates: start: 20210618
  7. LEVOTHYROXINE SODIUM [Concomitant]
     Active Substance: LEVOTHYROXINE SODIUM
     Route: 048
     Dates: start: 20210623
  8. FUROSEMIDE [Concomitant]
     Active Substance: FUROSEMIDE
     Dates: start: 20211019, end: 20220111
  9. ALDACTONE [Concomitant]
     Active Substance: SPIRONOLACTONE
     Dates: start: 20211119, end: 20220111
  10. THIAMINE HYDROCHLORIDE [Concomitant]
     Active Substance: THIAMINE HYDROCHLORIDE
     Dosage: SINIL
     Route: 048
     Dates: start: 20210618
  11. SHUMACTON [Concomitant]
     Route: 048
     Dates: start: 20220409, end: 20220409

REACTIONS (5)
  - Thyroxine free decreased [Recovering/Resolving]
  - Hypoalbuminaemia [Recovering/Resolving]
  - Insomnia [Recovering/Resolving]
  - Pyrexia [Recovering/Resolving]
  - Varices oesophageal [Recovered/Resolved]

NARRATIVE: CASE EVENT DATE: 20210623
